FAERS Safety Report 19866284 (Version 1)
Quarter: 2021Q3

REPORT INFORMATION
  Report Type: Report from Study
  Country: CN (occurrence: CN)
  Receive Date: 20210921
  Receipt Date: 20210921
  Transmission Date: 20211014
  Serious: Yes (Other)
  Sender: FDA-Public Use
  Company Number: CN-ASTRAZENECA-2021A729815

PATIENT
  Age: 81 Year
  Sex: Female

DRUGS (2)
  1. OSIMERTINIB. [Suspect]
     Active Substance: OSIMERTINIB
     Indication: LUNG ADENOCARCINOMA STAGE IV
     Route: 048
     Dates: start: 2018
  2. CABOZANTINIB [Suspect]
     Active Substance: CABOZANTINIB
     Indication: LUNG ADENOCARCINOMA STAGE IV
     Route: 065

REACTIONS (4)
  - Drug resistance [Unknown]
  - Acquired gene mutation [Unknown]
  - Malignant neoplasm progression [Unknown]
  - Diarrhoea [Unknown]
